FAERS Safety Report 24425131 (Version 1)
Quarter: 2024Q4

REPORT INFORMATION
  Report Type: Spontaneous
  Country: JP (occurrence: JP)
  Receive Date: 20241010
  Receipt Date: 20241010
  Transmission Date: 20250115
  Serious: Yes (Hospitalization, Other)
  Sender: GLAXOSMITHKLINE
  Company Number: JP-GSK-JP2024JPN122806

PATIENT

DRUGS (7)
  1. VALACYCLOVIR HYDROCHLORIDE [Suspect]
     Active Substance: VALACYCLOVIR HYDROCHLORIDE
     Indication: Herpes zoster oticus
     Dosage: 1000 MG, TID
     Route: 048
     Dates: start: 20240516, end: 20240518
  2. AZILSARTAN KAMEDOXOMIL [Concomitant]
     Active Substance: AZILSARTAN KAMEDOXOMIL
     Dosage: UNK
     Route: 048
  3. RAMELTEON [Concomitant]
     Active Substance: RAMELTEON
     Dosage: UNK
     Route: 048
  4. MEMANTINE HYDROCHLORIDE [Concomitant]
     Active Substance: MEMANTINE HYDROCHLORIDE
     Dosage: UNK
     Route: 048
  5. SODIUM PICOSULFATE [Concomitant]
     Active Substance: SODIUM PICOSULFATE
     Dosage: UNK
     Route: 048
  6. SENNOSIDES [Concomitant]
     Active Substance: SENNOSIDES
     Dosage: UNK
     Route: 048
  7. FLUFENAMIC ACID [Concomitant]
     Active Substance: FLUFENAMIC ACID
     Dosage: UNK
     Route: 050

REACTIONS (15)
  - Toxic encephalopathy [Recovered/Resolved]
  - Hallucination, visual [Unknown]
  - Pyramidal tract syndrome [Unknown]
  - Altered state of consciousness [Unknown]
  - Depressed level of consciousness [Recovering/Resolving]
  - Bacteraemia [Unknown]
  - Decreased appetite [Unknown]
  - Restlessness [Unknown]
  - Anger [Unknown]
  - Hyporesponsive to stimuli [Unknown]
  - Memory impairment [Unknown]
  - Disinhibition [Unknown]
  - Disturbance in attention [Unknown]
  - Speech disorder [Unknown]
  - Prescribed overdose [Unknown]

NARRATIVE: CASE EVENT DATE: 20240518
